FAERS Safety Report 7261739-6 (Version None)
Quarter: 2011Q1

REPORT INFORMATION
  Report Type: 
  Country: None (occurrence: None)
  Receive Date: 20110130
  Receipt Date: 20101103
  Transmission Date: 20110831
  Serious: No
  Sender: FDA-Public Use
  Company Number: US-ABBOTT-10P-163-0683099-00

PATIENT
  Age: 26 Year
  Sex: Male

DRUGS (2)
  1. HUMIRA [Suspect]
     Indication: CROHN'S DISEASE
     Dates: start: 20080801
  2. PENTASA [Concomitant]
     Indication: CROHN'S DISEASE
     Dosage: 500MG X 2 TABLETS THREE TIMES DAILY
     Dates: start: 20080801

REACTIONS (1)
  - INJECTION SITE URTICARIA [None]
